FAERS Safety Report 7025383-8 (Version None)
Quarter: 2010Q4

REPORT INFORMATION
  Report Type: 
  Country: None (occurrence: None)
  Receive Date: 20101001
  Receipt Date: 20100921
  Transmission Date: 20110411
  Serious: Yes (Other)
  Sender: FDA-Public Use
  Company Number: PHHY2010US63126

PATIENT
  Sex: Female

DRUGS (4)
  1. RECLAST [Suspect]
  2. BONIVA [Suspect]
  3. CRESTOR [Concomitant]
  4. SPIRIVA [Concomitant]

REACTIONS (8)
  - ANGINA PECTORIS [None]
  - DYSPEPSIA [None]
  - DYSSTASIA [None]
  - FEELING ABNORMAL [None]
  - HYPERSENSITIVITY [None]
  - PAIN [None]
  - PAIN IN EXTREMITY [None]
  - RENAL PAIN [None]
